FAERS Safety Report 5454687-5 (Version None)
Quarter: 2007Q3

REPORT INFORMATION
  Report Type: 
  Country: None (occurrence: None)
  Receive Date: 20070917
  Receipt Date: 20061027
  Transmission Date: 20080115
  Serious: No
  Sender: FDA-Public Use
  Company Number: US-ASTRAZENECA-2006UW18318

PATIENT
  Age: 36 Year
  Sex: Female
  Weight: 70.3 kg

DRUGS (6)
  1. SEROQUEL [Suspect]
     Indication: BIPOLAR DISORDER
     Route: 048
     Dates: start: 20060101
  2. CALCIUM [Concomitant]
  3. LAMICTAL [Concomitant]
  4. CLONIPINE [Concomitant]
  5. LUNESTA [Concomitant]
  6. THYROID TAB [Concomitant]

REACTIONS (2)
  - CONSTIPATION [None]
  - WEIGHT LOSS POOR [None]
